FAERS Safety Report 8761049 (Version 2)
Quarter: 2012Q4

REPORT INFORMATION
  Report Type: Report from Study
  Country: ES (occurrence: ES)
  Receive Date: 20120831
  Receipt Date: 20121016
  Transmission Date: 20130627
  Serious: Yes (Life-Threatening, Hospitalization)
  Sender: FDA-Public Use
  Company Number: ES-NOVOPROD-358959

PATIENT
  Age: 57 Year
  Sex: Male
  Weight: 90.8 kg

DRUGS (5)
  1. LIRAGLUTIDE FLEXPEN [Suspect]
     Indication: TYPE 2 DIABETES MELLITUS
     Dosage: 1.8 mg, qd
     Route: 058
     Dates: start: 20111102, end: 20120425
  2. LIRAGLUTIDE FLEXPEN [Suspect]
     Dosage: 1.8 mg, qd
     Route: 058
     Dates: start: 20120514
  3. CLOPIDOGREL [Concomitant]
     Dosage: 75 mg, qd
  4. ENALAPRIL [Concomitant]
     Dosage: 5 mg, UNK
  5. EMCONCOR [Concomitant]
     Dosage: 5 mg, UNK

REACTIONS (1)
  - Coronary revascularisation [Recovered/Resolved]
